FAERS Safety Report 4320143-0 (Version None)
Quarter: 2004Q1

REPORT INFORMATION
  Report Type: 
  Country: None (occurrence: None)
  Receive Date: 20040317
  Receipt Date: 20040309
  Transmission Date: 20041129
  Serious: Yes (Death)
  Sender: FDA-Public Use
  Company Number: NLWYE629909MAR04

PATIENT
  Sex: Female

DRUGS (2)
  1. EFFEXOR [Suspect]
     Indication: MAJOR DEPRESSION
     Dosage: ORAL
     Route: 048
     Dates: start: 20030101, end: 20031201
  2. UNSPECIFIED ANTIPSYCHOTIC AGENT (UNSPECIFIED ANTIPSYCHOTIC AGENT) [Concomitant]

REACTIONS (3)
  - CARDIOMYOPATHY [None]
  - LIVER FUNCTION TEST ABNORMAL [None]
  - MANIA [None]
